FAERS Safety Report 17348263 (Version 1)
Quarter: 2020Q1

REPORT INFORMATION
  Report Type: Report from Study
  Country: US (occurrence: US)
  Receive Date: 20200129
  Receipt Date: 20200129
  Transmission Date: 20200409
  Serious: No
  Sender: FDA-Public Use
  Company Number: US-EXELIXIS-CABO-19023712

PATIENT
  Sex: Male
  Weight: 54.42 kg

DRUGS (2)
  1. CABOMETYX [Suspect]
     Active Substance: CABOZANTINIB S-MALATE
     Dosage: 20 MG, QD (IN THE MORNING, ON AN EMPTY STOMACH)
     Dates: start: 20190914
  2. CABOMETYX [Suspect]
     Active Substance: CABOZANTINIB S-MALATE
     Indication: HEPATIC CANCER
     Dosage: 40 MG, QD
     Dates: start: 20190827, end: 20190910

REACTIONS (8)
  - Influenza like illness [Recovering/Resolving]
  - Weight decreased [Unknown]
  - Diarrhoea [Recovered/Resolved]
  - Fatigue [Not Recovered/Not Resolved]
  - Asthenia [Recovering/Resolving]
  - Muscle spasms [Recovering/Resolving]
  - Decreased appetite [Unknown]
  - Gait disturbance [Recovering/Resolving]
